FAERS Safety Report 7563650-X (Version None)
Quarter: 2011Q2

REPORT INFORMATION
  Report Type: 
  Country: None (occurrence: None)
  Receive Date: 20110622
  Receipt Date: 20110610
  Transmission Date: 20111010
  Serious: Yes (Death, Disabling, Other)
  Sender: FDA-Public Use
  Company Number: JP-ROCHE-780142

PATIENT
  Sex: Male
  Weight: 58 kg

DRUGS (10)
  1. CARBOPLATIN [Suspect]
     Route: 041
     Dates: start: 20110127, end: 20110506
  2. NOVORAPID [Concomitant]
     Route: 058
     Dates: start: 20110301
  3. AMLODIPINE [Concomitant]
     Route: 048
  4. AVASTIN [Suspect]
     Indication: NON-SMALL CELL LUNG CANCER
     Route: 041
     Dates: start: 20110127, end: 20110406
  5. LANTUS [Concomitant]
     Route: 058
     Dates: start: 20110301
  6. CANDESARTAN CILEXETIL [Concomitant]
     Route: 048
  7. TRAVATAN Z [Concomitant]
     Dosage: EYE DROP
     Route: 047
  8. LORAZEPAM [Concomitant]
     Route: 048
     Dates: start: 20110420
  9. OMEPRAZOLE [Concomitant]
     Route: 048
     Dates: start: 20110309
  10. PACLITAXEL [Suspect]
     Route: 041
     Dates: start: 20110127, end: 20110506

REACTIONS (3)
  - DISEASE PROGRESSION [None]
  - INTRACRANIAL TUMOUR HAEMORRHAGE [None]
  - NEUTROPHIL COUNT DECREASED [None]
